FAERS Safety Report 7769835-1 (Version None)
Quarter: 2011Q3

REPORT INFORMATION
  Report Type: 
  Country: None (occurrence: None)
  Receive Date: 20110922
  Receipt Date: 20110525
  Transmission Date: 20111222
  Serious: No
  Sender: FDA-Public Use
  Company Number: US-ASTRAZENECA-2011SE32494

PATIENT
  Age: 720 Month
  Sex: Female

DRUGS (7)
  1. SEROQUEL [Suspect]
     Indication: DEPRESSION
     Route: 048
  2. PLAVIX [Concomitant]
  3. XANAX [Concomitant]
  4. CELEXA [Concomitant]
  5. ZOCOR [Concomitant]
  6. METOPROLOL TARTRATE [Concomitant]
  7. TOPAMAX [Concomitant]

REACTIONS (2)
  - DEPRESSION [None]
  - DRUG DOSE OMISSION [None]
